FAERS Safety Report 6812338-9 (Version None)
Quarter: 2010Q3

REPORT INFORMATION
  Report Type: 
  Country: None (occurrence: None)
  Receive Date: 20100701
  Receipt Date: 20100623
  Transmission Date: 20110219
  Serious: Yes (Other)
  Sender: FDA-Public Use
  Company Number: US-KINGPHARMUSA00001-K201000801

PATIENT
  Age: 56 Year
  Sex: Male
  Weight: 81.633 kg

DRUGS (11)
  1. EMBEDA [Suspect]
     Indication: BACK PAIN
     Dosage: 50 MG, Q12H
     Route: 048
     Dates: start: 20100618
  2. EMBEDA [Suspect]
     Indication: NECK PAIN
  3. DIOVAN HCT [Concomitant]
     Indication: BLOOD PRESSURE INCREASED
     Dosage: 160/12.5 MG DAILY AT 4 AM
  4. NORVASC [Concomitant]
     Indication: BLOOD PRESSURE INCREASED
     Dosage: 10 MG, QD
  5. SYNTHROID [Concomitant]
     Indication: HYPOTHYROIDISM
     Dosage: 50 MCG, QD AT 4 AM
  6. POTASSIUM CHLORIDE [Concomitant]
     Indication: BLOOD POTASSIUM DECREASED
     Dosage: 20 MEQ, BID
  7. ZETIA [Concomitant]
     Indication: BLOOD CHOLESTEROL INCREASED
     Dosage: 10 MG, QD
  8. FISH OIL [Concomitant]
     Indication: BLOOD TRIGLYCERIDES INCREASED
     Dosage: UNK
  9. GRAPE SEED [Concomitant]
     Dosage: UNK
  10. MULTI-VITAMINS [Concomitant]
     Dosage: UNK
  11. MAGNESIUM [Concomitant]
     Dosage: 250 MG, QD

REACTIONS (3)
  - ALTERED STATE OF CONSCIOUSNESS [None]
  - CARDIAC FLUTTER [None]
  - DRUG INEFFECTIVE [None]
